FAERS Safety Report 9276893 (Version 1)
Quarter: 2013Q2

REPORT INFORMATION
  Report Type: Spontaneous
  Country: US (occurrence: US)
  Receive Date: 20130507
  Receipt Date: 20130507
  Transmission Date: 20140414
  Serious: Yes (Other)
  Sender: FDA-Public Use
  Company Number: US-PFIZER INC-2013136365

PATIENT
  Sex: 0

DRUGS (1)
  1. LEVOXYL [Suspect]
     Dosage: 0.125 MCG 5 TIMES/WEEK AND 0.112 MCG TWICE/WEEK

REACTIONS (2)
  - Antiphospholipid syndrome [Unknown]
  - Thrombosis [Unknown]
